FAERS Safety Report 14557702 (Version 2)
Quarter: 2018Q3

REPORT INFORMATION
  Report Type: Report from Study
  Country: DE (occurrence: DE)
  Receive Date: 20180221
  Receipt Date: 20180828
  Transmission Date: 20181010
  Serious: Yes (Other)
  Sender: FDA-Public Use
  Company Number: DE-INCYTE CORPORATION-2018IN000416

PATIENT

DRUGS (3)
  1. INCB018424 [Suspect]
     Active Substance: RUXOLITINIB
     Indication: MYELOFIBROSIS
     Dosage: 40 MG/DAY/TWICE
     Route: 048
     Dates: start: 20170628, end: 20171023
  2. INCB018424 [Suspect]
     Active Substance: RUXOLITINIB
     Indication: OSTEOSCLEROSIS
     Dosage: 30 MG/DAY/TWICE
     Route: 048
     Dates: start: 20171218
  3. INCB018424 [Suspect]
     Active Substance: RUXOLITINIB
     Indication: FIBROSIS
     Dosage: 35 MG/DAY/TWICE
     Route: 048
     Dates: start: 20171108

REACTIONS (8)
  - Second primary malignancy [Not Recovered/Not Resolved]
  - Cystitis [Recovered/Resolved]
  - Paraproteinaemia [Unknown]
  - Pain [Unknown]
  - Bone marrow disorder [Unknown]
  - Cystitis noninfective [Unknown]
  - Marginal zone lymphoma [Not Recovered/Not Resolved]
  - Neoplasm malignant [Unknown]

NARRATIVE: CASE EVENT DATE: 20171021
